FAERS Safety Report 23571179 (Version 2)
Quarter: 2024Q2

REPORT INFORMATION
  Report Type: Spontaneous
  Country: FR (occurrence: FR)
  Receive Date: 20240227
  Receipt Date: 20240416
  Transmission Date: 20240716
  Serious: Yes (Other)
  Sender: FDA-Public Use
  Company Number: FR-ViiV Healthcare Limited-80576

PATIENT

DRUGS (4)
  1. TIVICAY [Suspect]
     Active Substance: DOLUTEGRAVIR SODIUM
     Indication: HIV infection
     Dosage: UNK
  2. VALSARTAN [Suspect]
     Active Substance: VALSARTAN
     Indication: Hypertension
     Dosage: UNK
  3. PIFELTRO [Suspect]
     Active Substance: DORAVIRINE
     Indication: Product used for unknown indication
     Dosage: UNK
  4. INTERFERON [Concomitant]
     Active Substance: INTERFERON
     Indication: Hepatitis C
     Dosage: UNK

REACTIONS (3)
  - Liver injury [Unknown]
  - Hepatic artery thrombosis [Unknown]
  - Jaundice [Unknown]
